FAERS Safety Report 7256351-9 (Version None)
Quarter: 2011Q1

REPORT INFORMATION
  Report Type: 
  Country: None (occurrence: None)
  Receive Date: 20110129
  Receipt Date: 20100809
  Transmission Date: 20110831
  Serious: Yes (Hospitalization)
  Sender: FDA-Public Use
  Company Number: US-ABBOTT-10P-163-0643816-00

PATIENT
  Sex: Female

DRUGS (9)
  1. ACYCLOVIR [Concomitant]
     Indication: PRODUCT USED FOR UNKNOWN INDICATION
     Dosage: 2-400MG TABS DAILY
  2. ASACOL [Concomitant]
     Indication: CROHN'S DISEASE
     Dosage: 12-400MG TABS DAILY
  3. HUMIRA [Suspect]
     Dosage: 160 MG DOSE
     Dates: start: 20100429, end: 20100429
  4. MERCAPTOPURINE [Concomitant]
     Indication: CROHN'S DISEASE
     Dosage: 50 MG DAILY
  5. HUMIRA [Suspect]
     Indication: CROHN'S DISEASE
     Dosage: 160 MG DOSE
     Dates: start: 20091201, end: 20091201
  6. AMBIEN [Concomitant]
     Indication: PRODUCT USED FOR UNKNOWN INDICATION
     Dosage: 10 MG AT BEDTIME
  7. HUMIRA [Suspect]
  8. PREDNISONE [Concomitant]
     Indication: CROHN'S DISEASE
     Dosage: 40MG DAILY TAPERED DOSING
  9. TUMS [Concomitant]
     Indication: PRODUCT USED FOR UNKNOWN INDICATION
     Dosage: 4000MG DAILY

REACTIONS (4)
  - ARTHRALGIA [None]
  - CROHN'S DISEASE [None]
  - OEDEMA PERIPHERAL [None]
  - PAIN [None]
